FAERS Safety Report 4453891-2 (Version None)
Quarter: 2004Q3

REPORT INFORMATION
  Report Type: 
  Country: None (occurrence: None)
  Receive Date: 20040826
  Receipt Date: 20040614
  Transmission Date: 20050211
  Serious: No
  Sender: FDA-Public Use
  Company Number: WAES 0406UAS01473

PATIENT
  Age: 65 Year
  Sex: Female

DRUGS (4)
  1. ZETIA [Suspect]
     Indication: HYPERCHOLESTEROLAEMIA
     Dosage: 10 MG/DAILY/PO
     Route: 048
     Dates: start: 20040401
  2. FOSAMAX [Concomitant]
  3. PRILOSEC [Concomitant]
  4. DIURETIC (UNSPECIFIED) [Concomitant]

REACTIONS (2)
  - ASTHENIA [None]
  - MYALGIA [None]
